FAERS Safety Report 4909097-3 (Version None)
Quarter: 2006Q1

REPORT INFORMATION
  Report Type: 
  Country: None (occurrence: None)
  Receive Date: 20060213
  Receipt Date: 20041027
  Transmission Date: 20060701
  Serious: Yes (Life-Threatening, Hospitalization)
  Sender: FDA-Public Use
  Company Number: BR-ABBOTT-04P-020-0278974-01

PATIENT
  Sex: Male

DRUGS (15)
  1. RITONAVIR SOFT GELATIN CAPSULES [Suspect]
     Indication: HIV INFECTION
     Route: 048
     Dates: start: 20031020, end: 20041027
  2. RITONAVIR SOFT GELATIN CAPSULES [Suspect]
  3. TIPRANAVIR [Concomitant]
     Indication: HIV INFECTION
     Route: 048
     Dates: start: 20031020, end: 20041027
  4. FOLINIC ACID [Concomitant]
     Indication: NEUTROPENIA
     Route: 048
     Dates: start: 20040531
  5. VITAMIN B COMPLEX CAP [Concomitant]
     Indication: MITOCHONDRIAL TOXICITY
     Route: 048
     Dates: start: 20040510
  6. VITAMIN B COMPLEX CAP [Concomitant]
     Indication: PROPHYLAXIS
  7. L CARTININE [Concomitant]
     Indication: MITOCHONDRIAL TOXICITY
     Route: 048
     Dates: start: 20040514
  8. L CARTININE [Concomitant]
     Indication: PROPHYLAXIS
  9. BACTRIM [Concomitant]
     Indication: ANTIBIOTIC PROPHYLAXIS
     Dosage: 800/160 MG
     Route: 048
     Dates: start: 20040517
  10. BEZAFIBRATE [Concomitant]
     Indication: HYPERTRIGLYCERIDAEMIA
     Route: 048
     Dates: start: 20040524
  11. AZITHROMYCIN [Concomitant]
     Indication: MYCOBACTERIUM AVIUM COMPLEX INFECTION
     Route: 048
     Dates: start: 20040920
  12. AZITHROMYCIN [Concomitant]
     Indication: PROPHYLAXIS
  13. TENOFOVIR [Concomitant]
     Indication: HIV INFECTION
     Route: 048
     Dates: start: 20040510, end: 20041027
  14. LAMIVUDINE [Concomitant]
     Indication: HIV INFECTION
     Route: 048
     Dates: start: 20040510, end: 20041027
  15. EFAVIRENZ [Concomitant]
     Indication: HIV INFECTION
     Route: 048
     Dates: start: 20040510, end: 20041027

REACTIONS (3)
  - ALANINE AMINOTRANSFERASE INCREASED [None]
  - ASPARTATE AMINOTRANSFERASE INCREASED [None]
  - ISOSPORIASIS [None]
